FAERS Safety Report 8826798 (Version 1)
Quarter: 2012Q4

REPORT INFORMATION
  Report Type: 
  Country: US (occurrence: US)
  Receive Date: 20121005
  Receipt Date: 20121005
  Transmission Date: 20130627
  Serious: Yes (Other)
  Sender: FDA-Public Use
  Company Number: CHPA2012US020406

PATIENT
  Age: 67 Year
  Sex: Male

DRUGS (1)
  1. LAMISIL AT JOCK ITCH [Suspect]
     Indication: SKIN EXFOLIATION
     Dosage: UNK, UNK
     Route: 061
     Dates: start: 2010, end: 2012

REACTIONS (2)
  - Nail discolouration [Recovered/Resolved]
  - Off label use [Unknown]
